FAERS Safety Report 6174142-7 (Version None)
Quarter: 2009Q2

REPORT INFORMATION
  Report Type: 
  Country: None (occurrence: None)
  Receive Date: 20090430
  Receipt Date: 20090422
  Transmission Date: 20091009
  Serious: Yes (Hospitalization)
  Sender: FDA-Public Use
  Company Number: NL-WYE-H09075409

PATIENT
  Age: 15 Year
  Sex: Female
  Weight: 75 kg

DRUGS (8)
  1. PANTOZOL [Suspect]
     Dosage: 20 MG, FREQUENCY UNKNOWN
     Route: 048
     Dates: start: 20081218
  2. MELOXICAM [Suspect]
     Indication: PAIN
     Dosage: 15 MG, FREQUENCY UNKNOWN
     Route: 048
     Dates: start: 20081218
  3. SEVOFLURANE [Suspect]
     Dosage: 11 DOSAGE FORMS
     Route: 055
     Dates: start: 20081218
  4. VOLTAREN [Suspect]
     Indication: PAIN
     Dosage: 75 MG, FREQUENCY UNKNOWN
     Route: 048
     Dates: start: 20081218
  5. METHYLATROPINE NITRATE [Suspect]
     Dosage: UNKNOWN
     Route: 042
     Dates: start: 20081218
  6. PARACETAMOL [Suspect]
     Indication: PAIN
     Dosage: 1000 MG, FREQUENCY UNKNOWN
     Route: 048
     Dates: start: 20090118
  7. GINKGO BILOBA [Suspect]
     Dosage: 1 DOSAGE FORM, AS REQUIRED
     Route: 048
     Dates: start: 20080901, end: 20081219
  8. SUFENTANIL [Suspect]
     Dosage: UNKNOWN
     Route: 042
     Dates: start: 20081218

REACTIONS (2)
  - RENAL FAILURE ACUTE [None]
  - TUBULOINTERSTITIAL NEPHRITIS [None]
